FAERS Safety Report 5807525-2 (Version None)
Quarter: 2008Q3

REPORT INFORMATION
  Report Type: 
  Country: None (occurrence: None)
  Receive Date: 20080709
  Receipt Date: 20080709
  Transmission Date: 20090109
  Serious: Yes (Hospitalization)
  Sender: FDA-Public Use
  Company Number: None

PATIENT
  Age: 54 Year
  Sex: Male

DRUGS (2)
  1. ETOPOSIDE [Suspect]
     Dosage: 221 MG ONCE IV
     Route: 042
     Dates: start: 20080331, end: 20080401
  2. CISPLATIN [Suspect]
     Dosage: 177 MG ONCE  IV
     Route: 042
     Dates: start: 20080331, end: 20080401

REACTIONS (6)
  - ANAEMIA [None]
  - COUGH [None]
  - DYSPNOEA [None]
  - FATIGUE [None]
  - LEUKOPENIA [None]
  - NEUTROPENIA [None]
